FAERS Safety Report 5255583-9 (Version None)
Quarter: 2007Q1

REPORT INFORMATION
  Report Type: 
  Country: None (occurrence: None)
  Receive Date: 20070305
  Receipt Date: 20070226
  Transmission Date: 20070707
  Serious: Yes (Other)
  Sender: FDA-Public Use
  Company Number: GB-ROXANE LABORATORIES, INC-2007-BP-02705RO

PATIENT
  Age: 66 Year
  Sex: Female

DRUGS (3)
  1. CYCLOPHOSPHAMIDE [Suspect]
     Indication: CHRONIC LYMPHOCYTIC LEUKAEMIA STAGE 3
  2. FLUDARABINE [Suspect]
     Indication: CHRONIC LYMPHOCYTIC LEUKAEMIA STAGE 3
     Route: 048
  3. FILGRASTIM [Concomitant]

REACTIONS (4)
  - AUTOIMMUNE NEUTROPENIA [None]
  - LYMPHOPENIA [None]
  - MOUTH ULCERATION [None]
  - THROMBOCYTOPENIA [None]
